FAERS Safety Report 8957253 (Version 1)
Quarter: 2012Q4

REPORT INFORMATION
  Report Type: 
  Country: US (occurrence: US)
  Receive Date: 20121210
  Receipt Date: 20121210
  Transmission Date: 20130627
  Serious: Yes (Other)
  Sender: FDA-Public Use
  Company Number: US-BAYER-2012-128621

PATIENT
  Age: 56 Year
  Sex: Male
  Weight: 104.33 kg

DRUGS (9)
  1. XARELTO [Suspect]
     Indication: CEREBROVASCULAR ACCIDENT PROPHYLAXIS
     Dosage: 20 mg, QD
     Route: 048
     Dates: start: 201211
  2. XARELTO [Interacting]
     Indication: ATRIAL FIBRILLATION
  3. ACETYLSALICYLIC ACID({=100 MG) [Interacting]
     Indication: ATRIAL FIBRILLATION
     Dosage: 81 mg, QD
     Route: 048
  4. GLUCOPHAGE [Concomitant]
     Indication: DIABETES
     Dosage: 1000 mg, BID
     Route: 048
  5. GLUCOTROL [Concomitant]
     Indication: DIABETES
     Dosage: 10 mg, BID
     Route: 048
  6. LIPITOR [Concomitant]
     Indication: HIGH CHOLESTEROL
     Dosage: 10 mg, QD
     Route: 048
  7. BETAPACE [Concomitant]
     Indication: ATRIAL FIBRILLATION
     Dosage: 80 mg, BID
     Route: 048
  8. SYNTHROID [Concomitant]
     Indication: HYPOTHYROIDISM
     Dosage: .5 mg, QD
     Route: 048
  9. NEXIUM [Concomitant]
     Indication: GERD
     Dosage: 40 mg, QD
     Route: 048

REACTIONS (2)
  - Intestinal haemorrhage [Recovered/Resolved]
  - Rectal haemorrhage [Recovered/Resolved]
